FAERS Safety Report 9302019 (Version 1)
Quarter: 2013Q2

REPORT INFORMATION
  Report Type: Spontaneous
  Country: US (occurrence: US)
  Receive Date: 20130521
  Receipt Date: 20130521
  Transmission Date: 20140414
  Serious: No
  Sender: FDA-Public Use
  Company Number: US-009507513-1305USA012070

PATIENT
  Age: 46 Year
  Sex: Female
  Weight: 81.18 kg

DRUGS (1)
  1. NUVARING [Suspect]
     Indication: CONTRACEPTION
     Dosage: 3 WEEKS IN ONE WEEK RING FREE BREAK
     Route: 067
     Dates: start: 200601, end: 20130414

REACTIONS (3)
  - Menstruation delayed [Not Recovered/Not Resolved]
  - Withdrawal bleed [Unknown]
  - Inappropriate schedule of drug administration [Unknown]
